FAERS Safety Report 9026230 (Version 1)
Quarter: 2012Q4

REPORT INFORMATION
  Report Type: Spontaneous
  Country: US (occurrence: None)
  Receive Date: 20121217
  Receipt Date: 20121217
  Transmission Date: 20130627
  Serious: Yes (Other)
  Sender: FDA-Public Use
  Company Number: None

PATIENT
  Age: 9 Year
  Sex: Female

DRUGS (1)
  1. METHYLPHENIDATE 36 MG ER TAB [Suspect]
     Indication: ADHD
     Dosage: 2  q AM  PO
     Route: 048

REACTIONS (3)
  - Chest pain [None]
  - Tachycardia [None]
  - Product substitution issue [None]
